FAERS Safety Report 4825740-1 (Version None)
Quarter: 2005Q4

REPORT INFORMATION
  Report Type: 
  Country: None (occurrence: None)
  Receive Date: 20051111
  Receipt Date: 20051006
  Transmission Date: 20060501
  Serious: Yes (Death, Life-Threatening, Hospitalization, Disabling, Other)
  Sender: FDA-Public Use
  Company Number: DE-BRISTOL-MYERS SQUIBB COMPANY-13136056

PATIENT
  Age: 66 Year
  Sex: Female
  Weight: 49 kg

DRUGS (6)
  1. TAXOL [Suspect]
     Indication: BREAST CANCER
     Dates: start: 20050915, end: 20050915
  2. CYCLOPHOSPHAMIDE [Suspect]
     Indication: BREAST CANCER
     Dates: start: 20050727, end: 20050727
  3. XELODA [Suspect]
     Indication: BREAST CANCER
     Route: 048
     Dates: start: 20050915, end: 20050915
  4. EPIRUBICIN [Suspect]
     Indication: BREAST CANCER
     Dates: start: 20050727, end: 20050727
  5. NEORECORMON [Concomitant]
     Dates: start: 20050721
  6. NEULASTA [Concomitant]
     Dates: start: 20050716

REACTIONS (1)
  - INTERSTITIAL LUNG DISEASE [None]
